FAERS Safety Report 7870902-2 (Version None)
Quarter: 2011Q4

REPORT INFORMATION
  Report Type: 
  Country: None (occurrence: None)
  Receive Date: 20111029
  Receipt Date: 20110223
  Transmission Date: 20120403
  Serious: No
  Sender: FDA-Public Use
  Company Number: US-AMGEN-USASP2011010397

PATIENT
  Age: 56 Year
  Sex: Female

DRUGS (4)
  1. PLAQUENIL [Concomitant]
     Dosage: 2 MG, QD
  2. ENBREL [Suspect]
     Indication: RHEUMATOID ARTHRITIS
     Dosage: 50 MG, QWK
     Dates: start: 20101101
  3. TREXALL [Concomitant]
     Dosage: 8 MG, QWK
  4. AZULFIDINE [Concomitant]
     Dates: start: 20110101

REACTIONS (2)
  - PAIN [None]
  - DRUG INEFFECTIVE [None]
